FAERS Safety Report 11623524 (Version 1)
Quarter: 2015Q4

REPORT INFORMATION
  Report Type: Spontaneous
  Country: US (occurrence: US)
  Receive Date: 20151013
  Receipt Date: 20151013
  Transmission Date: 20160304
  Serious: No
  Sender: FDA-Public Use
  Company Number: US-JNJFOC-20150400707

PATIENT
  Age: 45 Year
  Sex: Male

DRUGS (3)
  1. TYLENOL EXTRA STRENGTH [Suspect]
     Active Substance: ACETAMINOPHEN
     Indication: OROPHARYNGEAL PAIN
     Dosage: TWO 500 MG PILLS EVERY 4 HOURS FOR 2-3 DAYS
     Route: 048
  2. TYLENOL EXTRA STRENGTH [Suspect]
     Active Substance: ACETAMINOPHEN
     Indication: NASOPHARYNGITIS
     Dosage: TWO 500 MG PILLS EVERY 4 HOURS FOR 2-3 DAYS
     Route: 048
  3. TYLENOL EXTRA STRENGTH [Suspect]
     Active Substance: ACETAMINOPHEN
     Indication: VIRAL INFECTION
     Dosage: TWO 500 MG PILLS EVERY 4 HOURS FOR 2-3 DAYS
     Route: 048

REACTIONS (3)
  - Product use issue [Unknown]
  - Incorrect dose administered [Unknown]
  - Wrong technique in product usage process [Unknown]
